FAERS Safety Report 14649598 (Version 2)
Quarter: 2018Q2

REPORT INFORMATION
  Report Type: Spontaneous
  Country: US (occurrence: US)
  Receive Date: 20180316
  Receipt Date: 20180418
  Transmission Date: 20180711
  Serious: Yes (Other)
  Sender: FDA-Public Use
  Company Number: US-MYLANLABS-2018M1015327

PATIENT
  Age: 83 Year
  Sex: Female
  Weight: 73 kg

DRUGS (2)
  1. FLURAZEPAM HYDROCHLORIDE CAPSULES, USP [Suspect]
     Active Substance: FLURAZEPAM HYDROCHLORIDE
     Indication: INSOMNIA
     Dosage: 30 MG, HS, 2, 15 MG A NIGHT
     Route: 048
     Dates: start: 20180119
  2. FLURAZEPAM HYDROCHLORIDE CAPSULES, USP [Suspect]
     Active Substance: FLURAZEPAM HYDROCHLORIDE
     Dosage: UNK

REACTIONS (9)
  - Drug dependence [Not Recovered/Not Resolved]
  - Spinal osteoarthritis [Not Recovered/Not Resolved]
  - Drug administration error [Unknown]
  - Product quality issue [Unknown]
  - Emotional disorder [Not Recovered/Not Resolved]
  - Drug ineffective [Not Recovered/Not Resolved]
  - Fatigue [Not Recovered/Not Resolved]
  - Confusional state [Not Recovered/Not Resolved]
  - Insomnia [Unknown]

NARRATIVE: CASE EVENT DATE: 2018
